FAERS Safety Report 19403019 (Version 1)
Quarter: 2021Q2

REPORT INFORMATION
  Report Type: Report from Study
  Country: BR (occurrence: BR)
  Receive Date: 20210610
  Receipt Date: 20210610
  Transmission Date: 20210717
  Serious: Yes (Death)
  Sender: FDA-Public Use
  Company Number: NVSC2021BR130592

PATIENT
  Sex: Male

DRUGS (1)
  1. COSENTYX [Suspect]
     Active Substance: SECUKINUMAB
     Indication: PSORIASIS
     Dosage: 300 MG, UNKNOWN (2 AMPOULES) (ATTACK DOSES)
     Route: 065
     Dates: start: 20210505

REACTIONS (3)
  - Multi-organ disorder [Fatal]
  - Psoriasis [Fatal]
  - Skin burning sensation [Unknown]
